FAERS Safety Report 9893602 (Version 3)
Quarter: 2016Q2

REPORT INFORMATION
  Report Type: Report from Study
  Country: IT (occurrence: IT)
  Receive Date: 20140213
  Receipt Date: 20160506
  Transmission Date: 20160815
  Serious: Yes (Other)
  Sender: FDA-Public Use
  Company Number: IT-CELGENEUS-083-21880-11073188

PATIENT

DRUGS (3)
  1. REVLIMID [Suspect]
     Active Substance: LENALIDOMIDE
     Route: 048
  2. REVLIMID [Suspect]
     Active Substance: LENALIDOMIDE
     Indication: CHRONIC LYMPHOCYTIC LEUKAEMIA
     Route: 048
  3. REVLIMID [Suspect]
     Active Substance: LENALIDOMIDE
     Dosage: INCREASE OF 5 MG DAILY
     Route: 048

REACTIONS (14)
  - Neutropenia [Unknown]
  - Tumour flare [Unknown]
  - Rash [Unknown]
  - Immune thrombocytopenic purpura [Unknown]
  - Febrile neutropenia [Unknown]
  - Haemolysis [Unknown]
  - Pneumonia [Unknown]
  - Infection [Unknown]
  - Acute kidney injury [Unknown]
  - Anaemia [Unknown]
  - Cytomegalovirus infection [Unknown]
  - Chronic lymphocytic leukaemia [Unknown]
  - Thrombocytopenia [Unknown]
  - Pyrexia [Unknown]
